FAERS Safety Report 6509970-9 (Version None)
Quarter: 2009Q4

REPORT INFORMATION
  Report Type: 
  Country: None (occurrence: None)
  Receive Date: 20091222
  Receipt Date: 20091210
  Transmission Date: 20100525
  Serious: Yes (Hospitalization)
  Sender: FDA-Public Use
  Company Number: GB-NOVOPROD-301917

PATIENT
  Age: 77 Year
  Sex: Male
  Weight: 78.9 kg

DRUGS (5)
  1. MIXTARD HUMAN 70/30 [Suspect]
     Indication: TYPE 2 DIABETES MELLITUS
     Dosage: 38 IU, QD
     Route: 058
     Dates: start: 20090922
  2. RANITIDINE [Concomitant]
     Indication: DRUG USE FOR UNKNOWN INDICATION
     Dosage: UNK MG, QD
     Route: 048
  3. RAMIPRIL [Concomitant]
     Indication: DRUG USE FOR UNKNOWN INDICATION
     Dosage: 5 MG, QD
     Route: 048
  4. SIMVASTATIN [Concomitant]
     Indication: DRUG USE FOR UNKNOWN INDICATION
     Dosage: 40 MG, QD
     Route: 048
  5. CORACTEN [Concomitant]
     Indication: DRUG USE FOR UNKNOWN INDICATION
     Dosage: 60 MG, QD
     Route: 048

REACTIONS (1)
  - HALLUCINATION, AUDITORY [None]
